FAERS Safety Report 7023541-X (Version None)
Quarter: 2010Q3

REPORT INFORMATION
  Report Type: 
  Country: None (occurrence: None)
  Receive Date: 20100930
  Receipt Date: 20100930
  Transmission Date: 20110219
  Serious: Yes (Life-Threatening)
  Sender: FDA-Public Use
  Company Number: None

PATIENT
  Age: 54 Year
  Sex: Male
  Weight: 81.6475 kg

DRUGS (5)
  1. OXYCONTIN [Suspect]
     Indication: ARTHRITIS
     Dosage: 80 MG 3 X PER DAY PO
     Route: 048
     Dates: start: 20100912, end: 20100929
  2. OXYCONTIN [Suspect]
     Indication: INTERVERTEBRAL DISC PROTRUSION
     Dosage: 80 MG 3 X PER DAY PO
     Route: 048
     Dates: start: 20100912, end: 20100929
  3. OXYCONTIN [Suspect]
     Indication: LIGAMENT RUPTURE
     Dosage: 80 MG 3 X PER DAY PO
     Route: 048
     Dates: start: 20100912, end: 20100929
  4. OXYCONTIN [Suspect]
     Indication: PAIN MANAGEMENT
     Dosage: 80 MG 3 X PER DAY PO
     Route: 048
     Dates: start: 20100912, end: 20100929
  5. OXYCONTIN [Suspect]
     Indication: THORACIC OUTLET SYNDROME
     Dosage: 80 MG 3 X PER DAY PO
     Route: 048
     Dates: start: 20100912, end: 20100929

REACTIONS (7)
  - ACTIVITIES OF DAILY LIVING IMPAIRED [None]
  - ADVERSE DRUG REACTION [None]
  - DRUG LEVEL INCREASED [None]
  - PRODUCT FORMULATION ISSUE [None]
  - PRODUCT SUBSTITUTION ISSUE [None]
  - RASH [None]
  - SOMNOLENCE [None]
